FAERS Safety Report 9518172 (Version 1)
Quarter: 2013Q3

REPORT INFORMATION
  Report Type: Report from Study
  Country: CO (occurrence: CO)
  Receive Date: 20130912
  Receipt Date: 20130912
  Transmission Date: 20140515
  Serious: Yes (Disabling, Other)
  Sender: FDA-Public Use
  Company Number: CO-BAYER-2013-108883

PATIENT
  Age: 57 Year
  Sex: Female

DRUGS (2)
  1. BETAFERON [Suspect]
     Indication: MULTIPLE SCLEROSIS
     Dosage: UNK
     Dates: start: 20130114, end: 20130803
  2. BETAFERON [Suspect]
     Indication: MULTIPLE SCLEROSIS

REACTIONS (3)
  - Abasia [Recovering/Resolving]
  - Influenza like illness [Recovered/Resolved]
  - Asthenia [Recovering/Resolving]
